FAERS Safety Report 17202787 (Version 1)
Quarter: 2019Q4

REPORT INFORMATION
  Report Type: Spontaneous
  Country: US (occurrence: US)
  Receive Date: 20191226
  Receipt Date: 20191226
  Transmission Date: 20200122
  Serious: Yes (Hospitalization, Other)
  Sender: FDA-Public Use
  Company Number: US-PFIZER INC-2019550788

PATIENT
  Age: 59 Year
  Sex: Male
  Weight: 108.8 kg

DRUGS (4)
  1. FINASTERIDE. [Concomitant]
     Active Substance: FINASTERIDE
     Indication: PROSTATIC DISORDER
     Dosage: 5 MG, DAILY
     Route: 048
  2. FINASTERIDE. [Concomitant]
     Active Substance: FINASTERIDE
     Indication: URINARY TRACT INFECTION
  3. DILANTIN [Suspect]
     Active Substance: PHENYTOIN
     Indication: SEIZURE
     Dosage: 200 MG, 2X/DAY (2 CAPSULES TWICE A DAY IN THE MORNING AT 0600 AND AT NIGHT AT 2100 )
  4. TEGRETOL [Concomitant]
     Active Substance: CARBAMAZEPINE
     Indication: SEIZURE
     Dosage: 1800 MG, DAILY (200MG 3.5 TABLETS AT 0600, 2.5 TABLETS AT 1300, AND 3 TABLETS AT 2100 BY MOUTH)
     Route: 048

REACTIONS (4)
  - Hip fracture [Recovering/Resolving]
  - Osteogenesis imperfecta [Unknown]
  - Blood pressure abnormal [Unknown]
  - Fall [Recovering/Resolving]

NARRATIVE: CASE EVENT DATE: 20190808
